FAERS Safety Report 9335044 (Version 1)
Quarter: 2013Q2

REPORT INFORMATION
  Report Type: Spontaneous
  Country: US (occurrence: US)
  Receive Date: 20130606
  Receipt Date: 20130606
  Transmission Date: 20140414
  Serious: Yes (Other)
  Sender: FDA-Public Use
  Company Number: US-GLAXOSMITHKLINE-A0789218A

PATIENT
  Age: 49 Year
  Sex: Male
  Weight: 100 kg

DRUGS (1)
  1. AVANDIA [Suspect]
     Indication: DIABETES MELLITUS
     Route: 048
     Dates: start: 200304, end: 2007

REACTIONS (2)
  - Cardiac disorder [Unknown]
  - Diabetic eye disease [Unknown]
